FAERS Safety Report 7926400-0 (Version None)
Quarter: 2011Q4

REPORT INFORMATION
  Report Type: 
  Country: None (occurrence: None)
  Receive Date: 20111118
  Receipt Date: 20111109
  Transmission Date: 20120403
  Serious: No
  Sender: FDA-Public Use
  Company Number: US-BIOGENIDEC-2011BI042884

PATIENT
  Age: 40 Year
  Sex: Female

DRUGS (1)
  1. TYSABRI [Suspect]
     Indication: MULTIPLE SCLEROSIS
     Route: 042
     Dates: start: 20071201

REACTIONS (7)
  - GASTROOESOPHAGEAL REFLUX DISEASE [None]
  - URINARY RETENTION [None]
  - URINARY TRACT INFECTION [None]
  - CYSTITIS [None]
  - MEMORY IMPAIRMENT [None]
  - CYSTITIS ESCHERICHIA [None]
  - ABDOMINAL DISTENSION [None]
